FAERS Safety Report 23658832 (Version 2)
Quarter: 2024Q2

REPORT INFORMATION
  Report Type: Spontaneous
  Country: FR (occurrence: FR)
  Receive Date: 20240321
  Receipt Date: 20240411
  Transmission Date: 20240715
  Serious: Yes (Hospitalization)
  Sender: FDA-Public Use
  Company Number: FR-NAPPMUNDI-GBR-2023-0112653

PATIENT
  Age: 28 Year
  Sex: Female
  Weight: 36 kg

DRUGS (12)
  1. POSACONAZOLE [Suspect]
     Active Substance: POSACONAZOLE
     Indication: Bronchopulmonary aspergillosis
     Dosage: 300 MILLIGRAM
     Route: 065
     Dates: start: 202309
  2. ANIFROLUMAB [Suspect]
     Active Substance: ANIFROLUMAB
     Indication: Autoinflammatory disease
     Dosage: UNK (FIRST PERFUSION)
     Route: 065
     Dates: start: 20240125
  3. ANIFROLUMAB [Suspect]
     Active Substance: ANIFROLUMAB
     Dosage: UNK (FIRST PERFUSION)
     Route: 065
     Dates: start: 20240223
  4. REZAFUNGIN ACETATE [Suspect]
     Active Substance: REZAFUNGIN ACETATE
     Indication: Bronchopulmonary aspergillosis
     Dosage: 200 MILLIGRAM (200MG IV OVER 1 HOUR (INFUSION TIME 2H))
     Route: 042
  5. REZAFUNGIN ACETATE [Suspect]
     Active Substance: REZAFUNGIN ACETATE
     Dosage: 400 MILLIGRAM (400MG IV OVER 1 HOUR )
     Route: 042
     Dates: start: 20231117
  6. REZAFUNGIN ACETATE [Suspect]
     Active Substance: REZAFUNGIN ACETATE
     Dosage: 200 MILLIGRAM (200MG IV OVER 1 HOUR (INFUSION TIME 3H))
     Route: 042
  7. PIPERACILLIN SODIUM\TAZOBACTAM SODIUM [Concomitant]
     Active Substance: PIPERACILLIN SODIUM\TAZOBACTAM SODIUM
     Indication: Pneumonia
     Dosage: UNK (STARTED AFTER PERFUSION)
     Route: 065
  8. RAMIPRIL [Concomitant]
     Active Substance: RAMIPRIL
     Indication: Product used for unknown indication
     Dosage: UNK
     Route: 065
     Dates: start: 202402
  9. DAPTOMYCIN [Concomitant]
     Active Substance: DAPTOMYCIN
     Indication: Infection
     Dosage: UNK
     Route: 065
  10. AMBISOME [Concomitant]
     Active Substance: AMPHOTERICIN B
     Indication: Product used for unknown indication
     Dosage: UNK
     Route: 065
     Dates: start: 20240208
  11. TEDIZOLID [Concomitant]
     Active Substance: TEDIZOLID
     Indication: Infection
     Dosage: UNK
     Route: 065
     Dates: start: 20240215
  12. DALBAVANCIN [Concomitant]
     Active Substance: DALBAVANCIN
     Indication: Infection
     Dosage: UNK
     Route: 065
     Dates: start: 20240220

REACTIONS (8)
  - Haemoptysis [Recovered/Resolved]
  - Dizziness [Not Recovered/Not Resolved]
  - Flushing [Unknown]
  - Alopecia [Unknown]
  - Nausea [Recovered/Resolved]
  - Pyrexia [Recovered/Resolved]
  - Pruritus [Recovered/Resolved]
  - Ataxia [Unknown]

NARRATIVE: CASE EVENT DATE: 20231117
